FAERS Safety Report 10264257 (Version 1)
Quarter: 2014Q2

REPORT INFORMATION
  Report Type: Spontaneous
  Country: GB (occurrence: None)
  Receive Date: 20140624
  Receipt Date: 20140624
  Transmission Date: 20141212
  Serious: Yes (Disabling, Other)
  Sender: FDA-Public Use
  Company Number: AUR-APL-2014-06534

PATIENT
  Age: 46 Year
  Sex: Female

DRUGS (2)
  1. AMLODIPINE 5 MG (AMLODIPINE) UNKNOWN, 5MG [Suspect]
     Indication: HYPERTENSION
     Route: 048
     Dates: end: 20140504
  2. CERAETTE /00011001/ (CEFALORIDINE) [Concomitant]

REACTIONS (9)
  - Depression [None]
  - Insomnia [None]
  - Decreased interest [None]
  - Hypoaesthesia [None]
  - Arthralgia [None]
  - Peripheral swelling [None]
  - Fatigue [None]
  - Varicose vein [None]
  - Weight increased [None]
